FAERS Safety Report 21368263 (Version 1)
Quarter: 2022Q3

REPORT INFORMATION
  Report Type: Spontaneous
  Country: US (occurrence: US)
  Receive Date: 20220923
  Receipt Date: 20220923
  Transmission Date: 20221027
  Serious: Yes (Hospitalization, Other)
  Sender: FDA-Public Use
  Company Number: US-NOVOPROD-959127

PATIENT
  Age: 47 Year
  Sex: Male

DRUGS (1)
  1. LEVEMIR [Suspect]
     Active Substance: INSULIN DETEMIR
     Indication: Type 2 diabetes mellitus
     Dosage: 75 IU, QD (40 IU AM, 35 IU PM)
     Route: 058
     Dates: start: 20220101

REACTIONS (6)
  - Ankle fracture [Unknown]
  - Infection [Unknown]
  - Dehydration [Unknown]
  - Blister [Unknown]
  - Blood glucose increased [Unknown]
  - Arthralgia [Unknown]

NARRATIVE: CASE EVENT DATE: 20220503
